FAERS Safety Report 9563646 (Version 1)
Quarter: 2013Q3

REPORT INFORMATION
  Report Type: Spontaneous
  Country: US (occurrence: None)
  Receive Date: 20130926
  Receipt Date: 20130926
  Transmission Date: 20140515
  Serious: No
  Sender: FDA-Public Use
  Company Number: None

PATIENT
  Age: 55 Year
  Sex: Male
  Weight: 70.5 kg

DRUGS (1)
  1. TERBINAFINE [Suspect]
     Indication: ANTIFUNGAL TREATMENT
     Route: 048
     Dates: start: 20110408, end: 20110824

REACTIONS (1)
  - Hepatic enzyme increased [None]
